FAERS Safety Report 5578940-X (Version None)
Quarter: 2008Q1

REPORT INFORMATION
  Report Type: 
  Country: None (occurrence: None)
  Receive Date: 20080102
  Receipt Date: 20071220
  Transmission Date: 20080703
  Serious: Yes (Hospitalization)
  Sender: FDA-Public Use
  Company Number: US-AMGEN-US243388

PATIENT
  Sex: Male

DRUGS (24)
  1. PANITUMUMAB [Suspect]
     Indication: COLORECTAL CANCER
     Route: 042
     Dates: start: 20070820, end: 20070903
  2. FLUOROURACIL [Suspect]
     Route: 042
     Dates: start: 20070820
  3. CAMPTOSAR [Suspect]
     Route: 042
     Dates: start: 20070820
  4. LEUCOVORIN [Concomitant]
     Route: 042
  5. COUMADIN [Concomitant]
     Route: 048
     Dates: start: 20061101, end: 20070905
  6. SOLU-MEDROL [Concomitant]
     Route: 042
     Dates: start: 20070827, end: 20070829
  7. PREDNISONE [Concomitant]
     Route: 048
     Dates: start: 20070829, end: 20070913
  8. INSULIN [Concomitant]
     Route: 030
     Dates: start: 20070922, end: 20071004
  9. SOLU-CORTEF [Concomitant]
     Route: 042
     Dates: start: 20070923, end: 20071004
  10. FUROSEMIDE [Concomitant]
     Route: 042
     Dates: start: 20070914, end: 20070928
  11. ZOFRAN [Concomitant]
     Route: 042
     Dates: start: 20070827, end: 20070829
  12. PHENERGAN HCL [Concomitant]
     Route: 048
     Dates: start: 20070913, end: 20070913
  13. PRIMAXIN [Concomitant]
     Route: 042
     Dates: start: 20070914, end: 20070921
  14. LEUKINE [Concomitant]
     Route: 058
     Dates: start: 20070914, end: 20070921
  15. OXYGEN [Concomitant]
     Route: 055
     Dates: start: 20070913, end: 20070914
  16. VITAMIN CAP [Concomitant]
     Route: 065
  17. PRILOSEC [Concomitant]
     Route: 065
  18. LOVENOX [Concomitant]
     Route: 065
  19. ALLOPURINOL [Concomitant]
     Route: 065
  20. WARFARIN SODIUM [Concomitant]
     Route: 065
  21. FLUOXETINE [Concomitant]
     Route: 065
  22. HYDROCODONE BITARTRATE [Concomitant]
     Route: 065
  23. NORVASC [Concomitant]
     Route: 048
     Dates: end: 20070806
  24. CORGARD [Concomitant]
     Route: 048
     Dates: start: 20070807

REACTIONS (3)
  - ADRENAL INSUFFICIENCY [None]
  - DEHYDRATION [None]
  - MUCOSAL INFLAMMATION [None]
